FAERS Safety Report 7211007-3 (Version None)
Quarter: 2011Q1

REPORT INFORMATION
  Report Type: 
  Country: None (occurrence: None)
  Receive Date: 20110105
  Receipt Date: 20101230
  Transmission Date: 20110831
  Serious: Yes (Life-Threatening, Hospitalization)
  Sender: FDA-Public Use
  Company Number: B0691632A

PATIENT
  Sex: Male

DRUGS (28)
  1. OXYCONTIN [Concomitant]
     Route: 065
     Dates: start: 20091109, end: 20091113
  2. ORAMORPH SR [Concomitant]
     Route: 065
     Dates: start: 20091110, end: 20091113
  3. AUGMENTIN [Suspect]
     Indication: FEBRILE BONE MARROW APLASIA
     Route: 048
     Dates: start: 20091101, end: 20091101
  4. ETOPOSIDE [Suspect]
     Indication: EXTRAGONADAL PRIMARY GERM CELL TUMOUR MIXED STAGE I
     Dosage: 770MG PER DAY
     Route: 042
     Dates: start: 20091109, end: 20091113
  5. NEUPOGEN [Concomitant]
     Route: 065
     Dates: start: 20091111, end: 20091113
  6. GRANULOCYTES [Concomitant]
     Route: 065
  7. PRIMPERAN TAB [Concomitant]
     Route: 065
     Dates: start: 20091110, end: 20091113
  8. ONDANSETRON [Concomitant]
     Route: 065
     Dates: start: 20091111
  9. TRIFLUCAN [Suspect]
     Indication: FEBRILE BONE MARROW APLASIA
     Dosage: 50MG PER DAY
     Route: 048
     Dates: start: 20091101
  10. CARBOPLATIN [Suspect]
     Indication: EXTRAGONADAL PRIMARY GERM CELL TUMOUR MIXED STAGE I
     Dosage: 1300MG PER DAY
     Route: 042
     Dates: start: 20091109, end: 20091111
  11. CONTRAMAL [Suspect]
     Indication: PAIN
     Route: 048
     Dates: start: 20091113, end: 20091113
  12. PACLITAXEL [Concomitant]
     Indication: CHEMOTHERAPY
     Route: 065
     Dates: start: 20091109
  13. IFOSFAMIDE [Concomitant]
     Indication: CHEMOTHERAPY
     Route: 065
     Dates: start: 20091109
  14. FLAGYL [Concomitant]
     Indication: FEBRILE BONE MARROW APLASIA
     Route: 065
     Dates: start: 20091101, end: 20091101
  15. BIONOLYTE [Concomitant]
     Dates: start: 20091109, end: 20091113
  16. LAROXYL [Suspect]
     Indication: PRODUCT USED FOR UNKNOWN INDICATION
     Route: 048
     Dates: start: 20091109, end: 20091111
  17. NEURONTIN [Suspect]
     Indication: PRODUCT USED FOR UNKNOWN INDICATION
     Dosage: 800MG THREE TIMES PER DAY
     Route: 048
     Dates: start: 20091109, end: 20091113
  18. HALDOL [Suspect]
     Indication: NAUSEA
     Dosage: 2MG PER DAY
     Route: 048
     Dates: start: 20091112, end: 20091113
  19. TOPALGIC (FRANCE) [Suspect]
     Indication: PAIN
     Dosage: 50MG THREE TIMES PER DAY
     Route: 048
     Dates: start: 20091113, end: 20091113
  20. POLARAMINE [Suspect]
     Indication: PRODUCT USED FOR UNKNOWN INDICATION
     Dosage: 1UNIT PER DAY
     Route: 042
     Dates: start: 20091113, end: 20091113
  21. OXYCODONE HCL [Concomitant]
     Route: 065
     Dates: start: 20091109, end: 20091110
  22. LIDOCAINE HYDROCHLORIDE IN PLASTIC CONTAINER [Concomitant]
     Route: 023
     Dates: start: 20091110, end: 20091113
  23. ZOPHREN [Concomitant]
     Route: 065
     Dates: start: 20091110, end: 20091113
  24. HYDROCORTISONE [Concomitant]
     Route: 065
     Dates: start: 20091113, end: 20091113
  25. LEXOMIL [Concomitant]
     Route: 065
     Dates: start: 20091109, end: 20091113
  26. CIPROFLOXACIN HYDROCHLORIDE [Suspect]
     Indication: FEBRILE BONE MARROW APLASIA
     Dosage: 500MG PER DAY
     Route: 048
     Dates: start: 20091101, end: 20091101
  27. EMEND [Suspect]
     Indication: PRODUCT USED FOR UNKNOWN INDICATION
     Route: 048
     Dates: start: 20091109, end: 20091113
  28. EFFERALGAN [Concomitant]
     Route: 065
     Dates: start: 20091110, end: 20091113

REACTIONS (3)
  - LIVER FUNCTION TEST ABNORMAL [None]
  - ILEITIS [None]
  - PNEUMATOSIS INTESTINALIS [None]
